FAERS Safety Report 11153364 (Version 1)
Quarter: 2015Q2

REPORT INFORMATION
  Report Type: Spontaneous
  Country: JP (occurrence: JP)
  Receive Date: 20150601
  Receipt Date: 20150601
  Transmission Date: 20150821
  Serious: Yes (Other)
  Sender: FDA-Public Use
  Company Number: JP-AMGEN-JPNSP2015052023

PATIENT
  Sex: Female

DRUGS (2)
  1. ENBREL [Suspect]
     Active Substance: ETANERCEPT
     Indication: PRODUCT USED FOR UNKNOWN INDICATION
     Dosage: 50 MG, UNK
     Route: 058
  2. FORTEO [Concomitant]
     Active Substance: TERIPARATIDE
     Indication: BONE DENSITY DECREASED
     Dosage: UNK UNK, UNK

REACTIONS (4)
  - Malaise [Recovered/Resolved]
  - Bone density decreased [Unknown]
  - Colon cancer [Unknown]
  - Headache [Recovered/Resolved]

NARRATIVE: CASE EVENT DATE: 201103
